FAERS Safety Report 9324379 (Version 1)
Quarter: 2013Q2

REPORT INFORMATION
  Report Type: Spontaneous
  Country: US (occurrence: US)
  Receive Date: 20130603
  Receipt Date: 20130603
  Transmission Date: 20140414
  Serious: No
  Sender: FDA-Public Use
  Company Number: US-009507513-1305USA008493

PATIENT
  Sex: Female

DRUGS (2)
  1. IMPLANON [Suspect]
     Indication: CONTRACEPTION
     Dosage: 1 DF, UNK
     Route: 059
  2. NEXPLANON [Concomitant]
     Dosage: 1 DF, UNK
     Route: 059

REACTIONS (3)
  - Device breakage [Unknown]
  - Medical device discomfort [Unknown]
  - No adverse event [Unknown]
